FAERS Safety Report 4319384-8 (Version None)
Quarter: 2004Q1

REPORT INFORMATION
  Report Type: 
  Country: None (occurrence: None)
  Receive Date: 20040318
  Receipt Date: 20040318
  Transmission Date: 20041129
  Serious: No
  Sender: FDA-Public Use
  Company Number: None

PATIENT
  Age: 72 Year
  Sex: Male
  Weight: 76 kg

DRUGS (11)
  1. TRICOR [Suspect]
     Indication: HYPERTRIGLYCERIDAEMIA
     Dosage: 160MG DAILY ORAL
     Route: 048
     Dates: start: 20030904, end: 20040114
  2. PIOGLITAZONE HCL [Concomitant]
  3. CITALOPRAM [Concomitant]
  4. WARFARIN SODIUM [Concomitant]
  5. FOSINOPRIL SODIUM [Concomitant]
  6. ATENOLOL [Concomitant]
  7. METFORMIN HCL [Concomitant]
  8. GLIPIZIDE [Concomitant]
  9. CALCIUM CARB/VIT D [Concomitant]
  10. OPERAMIDE [Concomitant]
  11. M.V.I. [Concomitant]

REACTIONS (2)
  - MYALGIA [None]
  - TREATMENT NONCOMPLIANCE [None]
